FAERS Safety Report 8654825 (Version 3)
Quarter: 2013Q2

REPORT INFORMATION
  Report Type: Spontaneous
  Country: US (occurrence: US)
  Receive Date: 20120709
  Receipt Date: 20130501
  Transmission Date: 20140414
  Serious: Yes (Hospitalization)
  Sender: FDA-Public Use
  Company Number: US-GLAXOSMITHKLINE-A0907756A

PATIENT
  Age: 81 Year
  Sex: Male
  Weight: 87.3 kg

DRUGS (1)
  1. AVANDIA [Suspect]
     Indication: PRODUCT USED FOR UNKNOWN INDICATION
     Dosage: 8MG PER DAY
     Route: 048
     Dates: end: 201006

REACTIONS (5)
  - Myocardial infarction [Recovering/Resolving]
  - Pollakiuria [Unknown]
  - Abdominal pain upper [Unknown]
  - Dry mouth [Unknown]
  - Headache [Unknown]
